FAERS Safety Report 23359472 (Version 1)
Quarter: 2024Q1

REPORT INFORMATION
  Report Type: Spontaneous
  Country: US (occurrence: US)
  Receive Date: 20240103
  Receipt Date: 20240103
  Transmission Date: 20240409
  Serious: Yes (Hospitalization)
  Sender: FDA-Public Use
  Company Number: US-STERISCIENCE B.V.-2023-ST-001619

PATIENT

DRUGS (6)
  1. VANCOMYCIN [Suspect]
     Active Substance: VANCOMYCIN
     Indication: Lower respiratory tract infection bacterial
     Dosage: SYSTEMIC
     Route: 065
  2. VANCOMYCIN [Suspect]
     Active Substance: VANCOMYCIN
     Indication: Providencia infection
  3. MINOCYCLINE [Suspect]
     Active Substance: MINOCYCLINE HYDROCHLORIDE
     Indication: Lower respiratory tract infection bacterial
     Dosage: SYSTEMIC
     Route: 065
  4. MINOCYCLINE [Suspect]
     Active Substance: MINOCYCLINE HYDROCHLORIDE
     Indication: Providencia infection
  5. COLISTIN [Concomitant]
     Active Substance: COLISTIN
     Indication: Lower respiratory tract infection bacterial
     Dosage: 150 MILLIGRAM, BID, NEBULISED
     Route: 055
  6. COLISTIN [Concomitant]
     Active Substance: COLISTIN
     Indication: Providencia infection

REACTIONS (2)
  - Acute kidney injury [Unknown]
  - Off label use [Unknown]
